FAERS Safety Report 5905297-4 (Version None)
Quarter: 2008Q4

REPORT INFORMATION
  Report Type: 
  Country: None (occurrence: None)
  Receive Date: 20081001
  Receipt Date: 20080928
  Transmission Date: 20090506
  Serious: Yes (Life-Threatening)
  Sender: FDA-Public Use
  Company Number: US-B.I. PHARMACEUTICALS,INC./RIDGEFIELD-2008-BP-15060BP

PATIENT
  Sex: Female

DRUGS (1)
  1. DULCOLAX [Suspect]
     Indication: BOWEL PREPARATION
     Dosage: 20MG
     Route: 048
     Dates: start: 20080928, end: 20080928

REACTIONS (4)
  - MEDICATION ERROR [None]
  - ORAL DISCOMFORT [None]
  - THROAT TIGHTNESS [None]
  - WRONG TECHNIQUE IN DRUG USAGE PROCESS [None]
